FAERS Safety Report 14110512 (Version 1)
Quarter: 2017Q4

REPORT INFORMATION
  Report Type: Spontaneous
  Country: US (occurrence: US)
  Receive Date: 20171019
  Receipt Date: 20171019
  Transmission Date: 20180321
  Serious: Yes (Other)
  Sender: FDA-Public Use
  Company Number: None

PATIENT
  Age: 58 Year
  Sex: Female
  Weight: 56.25 kg

DRUGS (6)
  1. MIRVASO [Suspect]
     Active Substance: BRIMONIDINE TARTRATE
     Indication: ROSACEA
     Route: 061
     Dates: start: 20170317, end: 20171017
  2. AMLODIPINE [Concomitant]
     Active Substance: AMLODIPINE BESYLATE
  3. MULTI-VITAMIN [Concomitant]
     Active Substance: .ALPHA.-TOCOPHEROL ACETATE, DL-\ASCORBIC ACID\CYANOCOBALAMIN\FLUORIDE ION\FOLIC ACID\NIACIN\PYRIDOXINE\RIBOFLAVIN\THIAMINE\VITAMIN A\VITAMIN D
  4. CALCIUM [Concomitant]
     Active Substance: CALCIUM
  5. VITAMIN D3 [Concomitant]
     Active Substance: CHOLECALCIFEROL
  6. EVISTA [Concomitant]
     Active Substance: RALOXIFENE HYDROCHLORIDE

REACTIONS (10)
  - Application site erythema [None]
  - Crying [None]
  - Dermatitis contact [None]
  - Drug hypersensitivity [None]
  - Application site swelling [None]
  - Application site vesicles [None]
  - Skin fissures [None]
  - Impetigo [None]
  - Rosacea [None]
  - Application site pain [None]

NARRATIVE: CASE EVENT DATE: 20171017
